FAERS Safety Report 13724966 (Version 1)
Quarter: 2017Q3

REPORT INFORMATION
  Report Type: Spontaneous
  Country: US (occurrence: US)
  Receive Date: 20170706
  Receipt Date: 20170706
  Transmission Date: 20171127
  Serious: No
  Sender: FDA-Public Use
  Company Number: US-PFIZER INC-2017285706

PATIENT
  Age: 47 Year
  Sex: Female

DRUGS (2)
  1. XELJANZ XR [Suspect]
     Active Substance: TOFACITINIB CITRATE
     Dosage: UNK
  2. METHOTREXATE SODIUM. [Suspect]
     Active Substance: METHOTREXATE SODIUM
     Dosage: 20 MG, WEEKLY

REACTIONS (13)
  - Fatigue [Unknown]
  - Musculoskeletal stiffness [Unknown]
  - C-reactive protein increased [Unknown]
  - Anaemia [Unknown]
  - Joint swelling [Unknown]
  - Arthralgia [Unknown]
  - Trigger finger [Unknown]
  - Throat irritation [Unknown]
  - Abdominal discomfort [Unknown]
  - Pain in extremity [Unknown]
  - Stress [Unknown]
  - Anxiety [Unknown]
  - Fear of injection [Unknown]
